FAERS Safety Report 6085805-6 (Version None)
Quarter: 2009Q1

REPORT INFORMATION
  Report Type: 
  Country: None (occurrence: None)
  Receive Date: 20090217
  Receipt Date: 20090217
  Transmission Date: 20090719
  Serious: Yes (Other)
  Sender: FDA-Public Use
  Company Number: None

PATIENT
  Age: 32 Year
  Sex: Male
  Weight: 95.2554 kg

DRUGS (1)
  1. DEXTROAMPETAMINE SULFATE TAB [Suspect]
     Indication: ATTENTION DEFICIT/HYPERACTIVITY DISORDER
     Dosage: ONE TAB EVERY 2 HRS. PO ONE DOSE
     Route: 048
     Dates: start: 20090213, end: 20090213

REACTIONS (6)
  - BEDRIDDEN [None]
  - FOOD POISONING [None]
  - MULTI-ORGAN DISORDER [None]
  - PAIN [None]
  - RENAL PAIN [None]
  - VOMITING [None]
